FAERS Safety Report 5249576-5 (Version None)
Quarter: 2007Q1

REPORT INFORMATION
  Report Type: 
  Country: None (occurrence: None)
  Receive Date: 20070228
  Receipt Date: 20060320
  Transmission Date: 20070707
  Serious: No
  Sender: FDA-Public Use
  Company Number: US-GLAXOSMITHKLINE-A0598206A

PATIENT
  Sex: Male

DRUGS (5)
  1. IMITREX [Suspect]
     Indication: MIGRAINE
     Route: 058
  2. TAMIFLU [Concomitant]
  3. SEROQUEL [Concomitant]
  4. NEXIUM [Concomitant]
  5. TYLENOL [Concomitant]

REACTIONS (1)
  - INCORRECT ROUTE OF DRUG ADMINISTRATION [None]
